FAERS Safety Report 11204970 (Version 1)
Quarter: 2015Q2

REPORT INFORMATION
  Report Type: Spontaneous
  Country: US (occurrence: US)
  Receive Date: 20150622
  Receipt Date: 20150622
  Transmission Date: 20150821
  Serious: Yes (Other)
  Sender: FDA-Public Use
  Company Number: US-GLENMARK GENERICS (EUROPE) LTD-2015GMK017613

PATIENT
  Age: 18 Year
  Sex: Female

DRUGS (1)
  1. TOPIRAMATE. [Suspect]
     Active Substance: TOPIRAMATE
     Indication: MIGRAINE
     Dosage: 50 MG, QD

REACTIONS (12)
  - Condition aggravated [Unknown]
  - Product use issue [Unknown]
  - Fatigue [Unknown]
  - Temperature intolerance [Unknown]
  - Sleep disorder [Unknown]
  - Contusion [Unknown]
  - Drug effect decreased [Unknown]
  - Weight decreased [None]
  - Eating disorder [Unknown]
  - Oligomenorrhoea [Unknown]
  - Self-induced vomiting [None]
  - Product use issue [None]
